FAERS Safety Report 17994988 (Version 1)
Quarter: 2020Q3

REPORT INFORMATION
  Report Type: Spontaneous
  Country: IT (occurrence: IT)
  Receive Date: 20200708
  Receipt Date: 20200708
  Transmission Date: 20201103
  Serious: Yes (Other)
  Sender: FDA-Public Use
  Company Number: IT-PFIZER INC-2020260297

PATIENT
  Age: 37 Year
  Sex: Female

DRUGS (5)
  1. CETIRIZINE [Concomitant]
     Active Substance: CETIRIZINE HYDROCHLORIDE
     Dosage: 10 MG, 2X/DAY
     Route: 048
  2. SOLDESAM [Concomitant]
     Active Substance: DEXAMETHASONE
     Indication: ANAPHYLAXIS PROPHYLAXIS
     Dosage: 12 MG, CYCLIC
     Route: 042
     Dates: start: 20200619, end: 20200619
  3. DOXORUBICIN HCL [Suspect]
     Active Substance: DOXORUBICIN HYDROCHLORIDE
     Indication: INVASIVE DUCTAL BREAST CARCINOMA
     Dosage: 80 MG, CYCLIC
     Route: 040
     Dates: start: 20200619, end: 20200619
  4. CYCLOPHOSPHAMIDE. [Suspect]
     Active Substance: CYCLOPHOSPHAMIDE
     Indication: INVASIVE DUCTAL BREAST CARCINOMA
     Dosage: 800 MG, CYCLIC
     Route: 042
     Dates: start: 20200619, end: 20200619
  5. PALONOSETRON HYDROCHLORIDE. [Concomitant]
     Active Substance: PALONOSETRON HYDROCHLORIDE
     Indication: PROPHYLAXIS OF NAUSEA AND VOMITING
     Dosage: 250 UG, CYCLIC
     Route: 042
     Dates: start: 20200619, end: 20200619

REACTIONS (1)
  - Atrial fibrillation [Recovered/Resolved]

NARRATIVE: CASE EVENT DATE: 20200623
